FAERS Safety Report 4566406-5 (Version None)
Quarter: 2005Q1

REPORT INFORMATION
  Report Type: 
  Country: None (occurrence: None)
  Receive Date: 20050201
  Receipt Date: 20040929
  Transmission Date: 20050727
  Serious: Yes (Hospitalization, Disabling)
  Sender: FDA-Public Use
  Company Number: 200413086JP

PATIENT
  Age: 33 Year
  Sex: Female
  Weight: 29.7 kg

DRUGS (10)
  1. LASIX [Suspect]
     Indication: OEDEMA PERIPHERAL
     Route: 048
     Dates: start: 19951220, end: 20030227
  2. THYRADIN S [Concomitant]
     Indication: HYPOTHYROIDISM
     Dosage: DOSE: 50-150MG/DAY
     Route: 048
     Dates: start: 19941001, end: 20030325
  3. GLYCYRON [Concomitant]
     Indication: HEPATIC FUNCTION ABNORMAL
     Dosage: DOSE: 3 TABLETS/DAY
     Route: 048
     Dates: start: 19941130, end: 20011213
  4. SELBEX [Concomitant]
     Indication: GASTRITIS
     Dosage: DOSE: 45-75MG/DAY
     Route: 048
     Dates: start: 19941130, end: 20020801
  5. ZANTAC [Concomitant]
     Indication: GASTRITIS
     Route: 048
     Dates: start: 20011228
  6. ALDACTONE-A [Concomitant]
     Indication: HYPOKALAEMIA
     Route: 048
     Dates: start: 19970508
  7. SLOW-K [Concomitant]
     Indication: HYPOKALAEMIA
     Dosage: DOSE: 1 TABLET
     Route: 048
     Dates: start: 19970508, end: 20020814
  8. VOLTAREN [Concomitant]
     Indication: SPINAL FRACTURE
     Dosage: DOSE: 1 TABLET
     Route: 048
     Dates: start: 19960222, end: 20020714
  9. URINORM [Concomitant]
     Indication: HYPERURICAEMIA
     Route: 048
     Dates: start: 19950803, end: 20020814
  10. ALLOPURINOL TAB [Concomitant]
     Indication: HYPERURICAEMIA
     Route: 048
     Dates: start: 20030109

REACTIONS (8)
  - GLOMERULONEPHRITIS [None]
  - HYPOALDOSTERONISM [None]
  - LAXATIVE ABUSE [None]
  - LUMBAR VERTEBRAL FRACTURE [None]
  - METABOLIC ALKALOSIS [None]
  - NEPHRITIS INTERSTITIAL [None]
  - PSEUDO-BARTTER SYNDROME [None]
  - RENAL FAILURE CHRONIC [None]
